FAERS Safety Report 4627186-8 (Version None)
Quarter: 2005Q1

REPORT INFORMATION
  Report Type: 
  Country: None (occurrence: None)
  Receive Date: 20050331
  Receipt Date: 20050322
  Transmission Date: 20050727
  Serious: Yes (Hospitalization)
  Sender: FDA-Public Use
  Company Number: Q05-007

PATIENT
  Age: 61 Year
  Sex: Male
  Weight: 91.6 kg

DRUGS (7)
  1. SAMARIUM SM-153 LEXIDRONAM INJECTION [Suspect]
     Indication: METASTASES TO BONE
     Dosage: SINGLE DOSE, IV AT 1.0 MC:/KG = 9.62
     Dates: start: 20050203
  2. SAMARIUM SM-153 LEXIDRONAM INJECTION [Suspect]
     Indication: PROSTATE CANCER METASTATIC
     Dosage: SINGLE DOSE, IV AT 1.0 MC:/KG = 9.62
     Dates: start: 20050203
  3. LOVENOX [Concomitant]
  4. COUMADIN [Concomitant]
  5. TYLENOL (CAPLET) [Concomitant]
  6. PROTONIX [Concomitant]
  7. LOPRESSOR [Concomitant]

REACTIONS (2)
  - DEEP VEIN THROMBOSIS [None]
  - VENTRICULAR TACHYCARDIA [None]
